FAERS Safety Report 13767110 (Version 1)
Quarter: 2017Q3

REPORT INFORMATION
  Report Type: Spontaneous
  Country: SI (occurrence: SI)
  Receive Date: 20170719
  Receipt Date: 20170719
  Transmission Date: 20171127
  Serious: Yes (Hospitalization)
  Sender: FDA-Public Use
  Company Number: SI-ROCHE-1965019

PATIENT
  Age: 80 Year
  Sex: Female
  Weight: 85 kg

DRUGS (8)
  1. MABTHERA [Suspect]
     Active Substance: RITUXIMAB
     Indication: RHEUMATOID ARTHRITIS
     Dosage: 1X/6 MONTHS
     Route: 042
     Dates: start: 20160617
  2. METHYLPREDNISOLONE. [Concomitant]
     Active Substance: METHYLPREDNISOLONE
     Route: 065
  3. ASPIRIN PROTECT [Concomitant]
     Active Substance: ASPIRIN
     Route: 065
  4. PRENEWEL [Concomitant]
     Active Substance: INDAPAMIDE\PERINDOPRIL ERBUMINE
     Dosage: 1X1/DAY, 4 MG/1,25 MG
     Route: 065
  5. VASILIP [Concomitant]
     Active Substance: SIMVASTATIN
     Dosage: 1X1/DAY
     Route: 065
  6. CORYOL (CARVEDILOL) [Concomitant]
     Dosage: 2X1/DAY
     Route: 065
  7. LANZUL [Concomitant]
     Active Substance: LANSOPRAZOLE
     Dosage: 1X1/DAY
     Route: 065
  8. ALPHA D3 [Concomitant]
     Dosage: 0.5MCG/DAY
     Route: 065

REACTIONS (1)
  - Acute myocardial infarction [Recovered/Resolved]

NARRATIVE: CASE EVENT DATE: 20161204
